FAERS Safety Report 4281930-0 (Version None)
Quarter: 2004Q1

REPORT INFORMATION
  Report Type: 
  Country: None (occurrence: None)
  Receive Date: 20040128
  Receipt Date: 20040113
  Transmission Date: 20041129
  Serious: Yes (Death, Life-Threatening, Hospitalization)
  Sender: FDA-Public Use
  Company Number: S03-341-538

PATIENT
  Age: 69 Year
  Sex: Female
  Weight: 74 kg

DRUGS (6)
  1. PS-341 [Suspect]
     Indication: COLORECTAL CANCER
     Dosage: 241 MG BIW; INTRAVENOUS BOLUS
     Route: 040
     Dates: start: 20030819, end: 20030826
  2. ENALAPRIL MALEATE [Concomitant]
  3. IRINOTECAN [Concomitant]
  4. LACTULOSE [Concomitant]
  5. PAXIL [Concomitant]
  6. SIMVASTATIN [Concomitant]

REACTIONS (13)
  - BONE MARROW DEPRESSION [None]
  - COMA [None]
  - CYSTITIS KLEBSIELLA [None]
  - HAEMORRHAGE INTRACRANIAL [None]
  - HYPOTENSION [None]
  - KLEBSIELLA INFECTION [None]
  - LEUKOPENIA [None]
  - LOSS OF CONSCIOUSNESS [None]
  - NEUTROPENIA [None]
  - PNEUMONIA [None]
  - PULMONARY EMBOLISM [None]
  - SEPTIC SHOCK [None]
  - THROMBOCYTOPENIA [None]
